FAERS Safety Report 4782729-9 (Version None)
Quarter: 2005Q3

REPORT INFORMATION
  Report Type: 
  Country: None (occurrence: None)
  Receive Date: 20050929
  Receipt Date: 20050831
  Transmission Date: 20060218
  Serious: No
  Sender: FDA-Public Use
  Company Number: 416113

PATIENT
  Sex: Male

DRUGS (5)
  1. COREG [Suspect]
     Indication: HYPERTENSION
     Dosage: 25MG TWICE PER DAY
     Route: 048
  2. ACE INHIBITOR [Concomitant]
  3. CALCIUM CHANNEL BLOCKER [Concomitant]
  4. DIURETIC [Concomitant]
  5. BETA BLOCKER [Concomitant]

REACTIONS (1)
  - DRUG INEFFECTIVE [None]
